FAERS Safety Report 9112618 (Version 1)
Quarter: 2013Q1

REPORT INFORMATION
  Report Type: Spontaneous
  Country: JP (occurrence: JP)
  Receive Date: 20130211
  Receipt Date: 20130211
  Transmission Date: 20140127
  Serious: Yes (Other)
  Sender: FDA-Public Use
  Company Number: PHHY2012JP023929

PATIENT
  Age: 33 Year
  Sex: Female
  Weight: 80 kg

DRUGS (4)
  1. HYDRALAZINE [Suspect]
     Indication: HYPERTENSION
  2. ALPHA METHY DOPA [Concomitant]
     Indication: HYPERTENSION
  3. RITODRINE [Concomitant]
  4. OXYTOCIN [Concomitant]
     Indication: LABOUR PAIN

REACTIONS (5)
  - Threatened labour [Unknown]
  - Blood glucose decreased [Unknown]
  - Glycosylated haemoglobin decreased [Unknown]
  - Haemoglobin decreased [Unknown]
  - Exposure during pregnancy [Recovered/Resolved]
